FAERS Safety Report 4782947-X (Version None)
Quarter: 2005Q3

REPORT INFORMATION
  Report Type: 
  Country: None (occurrence: None)
  Receive Date: 20050928
  Receipt Date: 20050928
  Transmission Date: 20060218
  Serious: Yes (Other)
  Sender: FDA-Public Use
  Company Number: None

PATIENT
  Age: 66 Year
  Sex: Female
  Weight: 68.0396 kg

DRUGS (1)
  1. WARFARIN -VARIED SEAL END LABELS AND INR [Suspect]
     Indication: THROMBOSIS
     Dosage: 1 DAILY
     Dates: start: 20040101, end: 20050501

REACTIONS (6)
  - CHEST PAIN [None]
  - PHARYNGEAL OEDEMA [None]
  - PHARYNGOLARYNGEAL PAIN [None]
  - PRURITUS [None]
  - SWELLING [None]
  - THROAT IRRITATION [None]
